FAERS Safety Report 7184987-2 (Version None)
Quarter: 2010Q4

REPORT INFORMATION
  Report Type: 
  Country: None (occurrence: None)
  Receive Date: 20101222
  Receipt Date: 20101210
  Transmission Date: 20110411
  Serious: Yes (Hospitalization)
  Sender: FDA-Public Use
  Company Number: US-MERCK-1011USA01648

PATIENT
  Age: 79 Year
  Sex: Female

DRUGS (11)
  1. COZAAR [Suspect]
     Indication: PRODUCT USED FOR UNKNOWN INDICATION
     Route: 048
  2. ADVAIR [Suspect]
     Indication: CHRONIC OBSTRUCTIVE PULMONARY DISEASE
     Route: 055
     Dates: start: 20090101
  3. DIGOXIN [Suspect]
     Indication: PRODUCT USED FOR UNKNOWN INDICATION
     Route: 065
  4. AMIODARONE [Suspect]
     Indication: HEART RATE INCREASED
     Route: 065
  5. NITROGLYCERIN [Suspect]
     Indication: PRODUCT USED FOR UNKNOWN INDICATION
     Route: 061
  6. SIMVASTATIN [Concomitant]
     Route: 048
  7. OMEPRAZOLE [Concomitant]
     Route: 065
  8. VITAMINS (UNSPECIFIED) [Concomitant]
     Route: 065
  9. ALBUTEROL SULFATE [Concomitant]
     Route: 065
  10. COMBIVENT [Concomitant]
     Route: 065
  11. BUMETANIDE [Concomitant]
     Route: 065

REACTIONS (5)
  - ADVERSE REACTION [None]
  - CARDIAC DISORDER [None]
  - DYSPNOEA [None]
  - HEART RATE INCREASED [None]
  - OVERDOSE [None]
